FAERS Safety Report 8775483 (Version 2)
Quarter: 2012Q4

REPORT INFORMATION
  Report Type: Report from Study
  Country: US (occurrence: US)
  Receive Date: 20120909
  Receipt Date: 20120922
  Transmission Date: 20130627
  Serious: Yes (Hospitalization)
  Sender: FDA-Public Use
  Company Number: US-ABBOTT-12P-163-0975847-00

PATIENT
  Sex: Male
  Weight: 113.5 kg

DRUGS (8)
  1. HUMIRA [Suspect]
     Indication: RHEUMATOID ARTHRITIS
     Dates: start: 200901
  2. ANTIBIOTIC PENICILLIN DERIVATIVE, 1000-1500 MG [Concomitant]
     Indication: DENTAL CLEANING
  3. ANTIBIOTIC PENICILLIN DERIVATIVE, 1000-1500 MG [Concomitant]
     Indication: PROPHYLAXIS
  4. ARAVA [Concomitant]
     Indication: PRODUCT USED FOR UNKNOWN INDICATION
  5. LOSARTIN [Concomitant]
     Indication: BLOOD PRESSURE
  6. VITAMINS [Concomitant]
     Indication: PRODUCT USED FOR UNKNOWN INDICATION
  7. OXYPROZIN [Concomitant]
     Indication: PRODUCT USED FOR UNKNOWN INDICATION
  8. PREDNISONE [Concomitant]
     Indication: PRODUCT USED FOR UNKNOWN INDICATION
     Dosage: 5 mg daily dose

REACTIONS (5)
  - Osteonecrosis [Unknown]
  - Arthralgia [Recovered/Resolved]
  - Osteoarthritis [Unknown]
  - Oedema peripheral [Unknown]
  - Insomnia [Unknown]
